FAERS Safety Report 10581084 (Version 1)
Quarter: 2014Q4

REPORT INFORMATION
  Report Type: Spontaneous
  Country: US (occurrence: None)
  Receive Date: 20141112
  Receipt Date: 20141112
  Transmission Date: 20150529
  Serious: Yes (Other)
  Sender: FDA-Public Use
  Company Number: None

PATIENT
  Age: 38 Year
  Sex: Female
  Weight: 81.19 kg

DRUGS (1)
  1. PARAGARD T380A [Suspect]
     Active Substance: COPPER
     Indication: CONTRACEPTION
     Dates: start: 20110314, end: 20141111

REACTIONS (3)
  - Pregnancy with contraceptive device [None]
  - Stress [None]
  - Exposure during pregnancy [None]

NARRATIVE: CASE EVENT DATE: 20141006
